FAERS Safety Report 9952726 (Version 1)
Quarter: 2014Q1

REPORT INFORMATION
  Report Type: Report from Study
  Country: US (occurrence: US)
  Receive Date: 20140304
  Receipt Date: 20140304
  Transmission Date: 20141002
  Serious: No
  Sender: FDA-Public Use
  Company Number: US-ABBVIE-13P-163-1078881-00

PATIENT
  Age: 23 Year
  Sex: Female

DRUGS (11)
  1. HUMIRA [Suspect]
     Indication: COLITIS ULCERATIVE
     Dates: start: 20130320, end: 20130320
  2. HUMIRA [Suspect]
     Indication: PSORIASIS
     Dates: start: 20130403, end: 20130403
  3. HUMIRA [Suspect]
     Dates: start: 20130417
  4. ASACOL HD [Concomitant]
     Indication: COLITIS ULCERATIVE
  5. ROWASA [Concomitant]
     Indication: COLITIS ULCERATIVE
  6. OLUX [Concomitant]
     Indication: PSORIASIS
     Dosage: FOAM APPLY TO SCALP AT BETIME
  7. DEXAMETHASONE [Concomitant]
     Indication: PSORIASIS
     Dosage: APPLY ON LEGS AT BEDTIME
  8. DESONIDE [Concomitant]
     Indication: PSORIASIS
     Dosage: APPLY AT BEDTIME
  9. CLINDAMYCIN PHOSPHATE [Concomitant]
     Indication: PSORIASIS
     Dosage: APPLY EVERY MORNING
  10. CITRACAL [Concomitant]
     Indication: SUPPLEMENTATION THERAPY
     Dosage: DAILY
  11. BIOTINE [Concomitant]
     Indication: SUPPLEMENTATION THERAPY
     Dosage: 5 MG DAILY

REACTIONS (6)
  - Agitation [Not Recovered/Not Resolved]
  - Irritability [Not Recovered/Not Resolved]
  - Mania [Not Recovered/Not Resolved]
  - Frustration [Not Recovered/Not Resolved]
  - Anger [Not Recovered/Not Resolved]
  - Psoriasis [Not Recovered/Not Resolved]
